FAERS Safety Report 8201168-1 (Version None)
Quarter: 2012Q1

REPORT INFORMATION
  Report Type: 
  Country: None (occurrence: None)
  Receive Date: 20120312
  Receipt Date: 20120302
  Transmission Date: 20120608
  Serious: Yes (Hospitalization, Other)
  Sender: FDA-Public Use
  Company Number: PHFR2012GB001528

PATIENT
  Sex: Male

DRUGS (1)
  1. CLOZARIL [Suspect]
     Indication: SCHIZOPHRENIA
     Route: 048
     Dates: start: 20010701, end: 20120226

REACTIONS (5)
  - SEDATION [None]
  - APPENDICITIS PERFORATED [None]
  - WHITE BLOOD CELL COUNT DECREASED [None]
  - ABDOMINAL SEPSIS [None]
  - PLATELET COUNT DECREASED [None]
